FAERS Safety Report 8965621 (Version 1)
Quarter: 2012Q4

REPORT INFORMATION
  Report Type: Spontaneous
  Country: FR (occurrence: None)
  Receive Date: 20121206
  Receipt Date: 20121206
  Transmission Date: 20130627
  Serious: Yes (Hospitalization)
  Sender: FDA-Public Use
  Company Number: GAM-260-12-FR

PATIENT
  Age: 52 Year
  Sex: Male

DRUGS (11)
  1. OCTAGAM [Suspect]
     Indication: ENCEPHALITIS
     Route: 043
     Dates: start: 20120827, end: 20120903
  2. SOLUMEDROL [Suspect]
     Indication: ENCEPHALITIS
     Dates: start: 20120827, end: 20120903
  3. MABTHERA [Suspect]
     Indication: ENCEPHALITIS
     Dates: start: 20120928, end: 20120928
  4. ESOMEPRAZOLE [Concomitant]
  5. VITAMIN B9 [Concomitant]
  6. PYROXIDINE [Concomitant]
  7. THIAMINE [Concomitant]
  8. DIAZEPAM [Concomitant]
  9. DIAZEPAM [Concomitant]
  10. TOPIRAMATE [Concomitant]
  11. OXCARBAZEPINE [Concomitant]

REACTIONS (5)
  - Prostatitis [None]
  - Left ventricular failure [None]
  - Drug ineffective [None]
  - Pseudomonas infection [None]
  - Oedema peripheral [None]
